FAERS Safety Report 10698201 (Version 1)
Quarter: 2015Q1

REPORT INFORMATION
  Report Type: Spontaneous
  Country: US (occurrence: None)
  Receive Date: 20150107
  Receipt Date: 20150107
  Transmission Date: 20150721
  Serious: Yes (Hospitalization)
  Sender: FDA-Public Use
  Company Number: None

PATIENT
  Age: 39 Year
  Sex: Male
  Weight: 83.46 kg

DRUGS (10)
  1. NICODERM CQ [Concomitant]
     Active Substance: NICOTINE
  2. STRATTERA [Concomitant]
     Active Substance: ATOMOXETINE HYDROCHLORIDE
  3. CLONIDINE. [Concomitant]
     Active Substance: CLONIDINE
  4. NEUTRONTIN [Concomitant]
  5. OXYCODONE [Concomitant]
     Active Substance: OXYCODONE
  6. PRAZOSIN [Concomitant]
     Active Substance: PRAZOSIN
  7. BACTRIM DS [Concomitant]
     Active Substance: SULFAMETHOXAZOLE\TRIMETHOPRIM
  8. RISPERIDONE. [Concomitant]
     Active Substance: RISPERIDONE
  9. ATIVAN [Concomitant]
     Active Substance: LORAZEPAM
  10. FLUOXETINE [Suspect]
     Active Substance: FLUOXETINE\FLUOXETINE HYDROCHLORIDE
     Indication: AFFECTIVE DISORDER
     Route: 048
     Dates: start: 20141226, end: 20141228

REACTIONS (3)
  - Scrotal swelling [None]
  - Inappropriate schedule of drug administration [None]
  - Incorrect dose administered [None]

NARRATIVE: CASE EVENT DATE: 20141226
